FAERS Safety Report 19246108 (Version 3)
Quarter: 2021Q2

REPORT INFORMATION
  Report Type: Report from Study
  Country: US (occurrence: US)
  Receive Date: 20210512
  Receipt Date: 20210617
  Transmission Date: 20210717
  Serious: Yes (Hospitalization)
  Sender: FDA-Public Use
  Company Number: NVSC2021US102812

PATIENT
  Age: 53 Year
  Sex: Female

DRUGS (2)
  1. ENTRESTO [Suspect]
     Active Substance: SACUBITRIL\VALSARTAN
     Indication: CARDIOMYOPATHY
     Dosage: 100 MG, BID (49.51 MG)
     Route: 048
     Dates: start: 20210425
  2. ENTRESTO [Suspect]
     Active Substance: SACUBITRIL\VALSARTAN
     Indication: CARDIAC FAILURE

REACTIONS (11)
  - Sleep apnoea syndrome [Unknown]
  - Pericardial effusion [Unknown]
  - Chest pain [Unknown]
  - Anxiety [Unknown]
  - Feeling abnormal [Unknown]
  - Tremor [Unknown]
  - Pain in extremity [Recovering/Resolving]
  - Pleural effusion [Unknown]
  - Pleurisy [Unknown]
  - Peripheral swelling [Unknown]
  - Weight decreased [Recovering/Resolving]

NARRATIVE: CASE EVENT DATE: 20210425
